FAERS Safety Report 4518985-1 (Version None)
Quarter: 2004Q4

REPORT INFORMATION
  Report Type: 
  Country: None (occurrence: None)
  Receive Date: 20041203
  Receipt Date: 20041203
  Transmission Date: 20050328
  Serious: No
  Sender: FDA-Public Use
  Company Number: None

PATIENT
  Age: 56 Year
  Sex: Male
  Weight: 68.0396 kg

DRUGS (3)
  1. LEVOFLOXACIN [Suspect]
     Indication: INFECTION PROPHYLAXIS
     Dosage: 500 MG QD ORAL
     Route: 048
     Dates: start: 20041001, end: 20041007
  2. LEVOFLOXACIN [Suspect]
     Indication: NEPHROLITHIASIS
     Dosage: 500 MG QD ORAL
     Route: 048
     Dates: start: 20041001, end: 20041007
  3. LEVOFLOXACIN [Suspect]
     Indication: URINARY TRACT INFECTION
     Dosage: 500 MG QD ORAL
     Route: 048
     Dates: start: 20041001, end: 20041007

REACTIONS (1)
  - RASH [None]
